FAERS Safety Report 6925332-4 (Version None)
Quarter: 2010Q3

REPORT INFORMATION
  Report Type: 
  Country: None (occurrence: None)
  Receive Date: 20100816
  Receipt Date: 20100803
  Transmission Date: 20110219
  Serious: Yes (Death)
  Sender: FDA-Public Use
  Company Number: US-JNJFOC-20100801660

PATIENT
  Age: 15 Year
  Sex: Female

DRUGS (1)
  1. INFLIXIMAB, RECOMBINANT [Suspect]
     Indication: SARCOIDOSIS
     Route: 042

REACTIONS (1)
  - HISTOPLASMOSIS DISSEMINATED [None]
